FAERS Safety Report 5996242-4 (Version None)
Quarter: 2008Q4

REPORT INFORMATION
  Report Type: 
  Country: None (occurrence: None)
  Receive Date: 20081212
  Receipt Date: 20081013
  Transmission Date: 20090506
  Serious: No
  Sender: FDA-Public Use
  Company Number: US-ABBOTT-08P-163-0481521-00

PATIENT
  Sex: Male
  Weight: 74.91 kg

DRUGS (3)
  1. HUMIRA [Suspect]
     Indication: CROHN'S DISEASE
     Dosage: 160MG ONCE
     Dates: start: 20080922
  2. HUMIRA [Suspect]
     Dosage: 80MG
     Dates: start: 20081006
  3. HUMIRA [Suspect]
     Dates: start: 20081020

REACTIONS (4)
  - EYE PAIN [None]
  - NASAL CONGESTION [None]
  - RESPIRATORY TRACT CONGESTION [None]
  - SINUSITIS [None]
